FAERS Safety Report 6016769-9 (Version None)
Quarter: 2008Q4

REPORT INFORMATION
  Report Type: 
  Country: None (occurrence: None)
  Receive Date: 20081218
  Receipt Date: 20081202
  Transmission Date: 20090506
  Serious: Yes (Other)
  Sender: FDA-Public Use
  Company Number: ALL1-2008-03447

PATIENT
  Age: 11 Year
  Sex: Female
  Weight: 47.6 kg

DRUGS (5)
  1. DAYTRANA [Suspect]
     Indication: ATTENTION DEFICIT/HYPERACTIVITY DISORDER
     Dosage: 20 MG, 1X/DAY:QD, TRANSDERMAL
     Route: 062
     Dates: start: 20070101, end: 20080801
  2. DAYTRANA [Suspect]
     Indication: ATTENTION DEFICIT/HYPERACTIVITY DISORDER
     Dosage: 20 MG, 1X/DAY:QD, TRANSDERMAL
     Route: 062
     Dates: start: 20080901
  3. SINGULAIR [Concomitant]
  4. NASONEX [Concomitant]
  5. PEPCID [Concomitant]

REACTIONS (4)
  - APPLICATION SITE RASH [None]
  - PRODUCT QUALITY ISSUE [None]
  - SCARLET FEVER [None]
  - WEIGHT DECREASED [None]
